FAERS Safety Report 16123760 (Version 1)
Quarter: 2019Q1

REPORT INFORMATION
  Report Type: Spontaneous
  Country: DE (occurrence: DE)
  Receive Date: 20190327
  Receipt Date: 20190327
  Transmission Date: 20190418
  Serious: Yes (Hospitalization)
  Sender: FDA-Public Use
  Company Number: DE-MYLANLABS-2019M1027528

PATIENT
  Age: 62 Year
  Sex: Male
  Weight: 92 kg

DRUGS (7)
  1. VALSACOR COMP [Suspect]
     Active Substance: HYDROCHLOROTHIAZIDE\VALSARTAN
     Indication: PRODUCT USED FOR UNKNOWN INDICATION
     Dosage: UNK
     Dates: start: 20180731
  2. VALSARTAN DURA 80 MG FILMTABLETTEN [Suspect]
     Active Substance: VALSARTAN
     Indication: PRODUCT USED FOR UNKNOWN INDICATION
     Dosage: UNK
     Dates: start: 20180731
  3. PROVAS MAXX [Suspect]
     Active Substance: HYDROCHLOROTHIAZIDE\VALSARTAN
     Indication: PRODUCT USED FOR UNKNOWN INDICATION
     Dosage: UNK
     Dates: start: 20181025
  4. VALSARTAN DURA 80 MG FILMTABLETTEN [Suspect]
     Active Substance: VALSARTAN
     Dosage: UNK
     Dates: start: 20180917
  5. VALSARTAN 1A PHARMA [Suspect]
     Active Substance: VALSARTAN
     Indication: PRODUCT USED FOR UNKNOWN INDICATION
     Dosage: AT LEAST ONE TABLET OF THESE
     Dates: start: 20140707
  6. VALSARTAN 1A PHARMA PLUS [Suspect]
     Active Substance: HYDROCHLOROTHIAZIDE\VALSARTAN
     Indication: PRODUCT USED FOR UNKNOWN INDICATION
     Dosage: UNK, QD
     Dates: start: 20140613
  7. PROVAS /00020001/ [Suspect]
     Active Substance: ACETAMINOPHEN
     Indication: PRODUCT USED FOR UNKNOWN INDICATION
     Dosage: UNK
     Dates: start: 20181025

REACTIONS (2)
  - Adenocarcinoma gastric [Unknown]
  - Large intestine polyp [Unknown]

NARRATIVE: CASE EVENT DATE: 201811
